FAERS Safety Report 7795252-4 (Version None)
Quarter: 2011Q4

REPORT INFORMATION
  Report Type: 
  Country: None (occurrence: None)
  Receive Date: 20111004
  Receipt Date: 20110922
  Transmission Date: 20120403
  Serious: Yes (Death)
  Sender: FDA-Public Use
  Company Number: GR-GILEAD-2011-0044417

PATIENT
  Sex: Male

DRUGS (7)
  1. PLAVIX [Concomitant]
     Dosage: 75 MG, QD
  2. ISOMON [Concomitant]
     Dosage: 20 MG, QD
  3. RANOLAZINE [Suspect]
     Indication: ANGINA PECTORIS
     Dosage: 375 MG, BID
     Dates: start: 20110301, end: 20110601
  4. GLUCOPHAGE [Concomitant]
     Dosage: 850 MG, QD
  5. INSULIN [Concomitant]
  6. DILTIAZEM HCL [Concomitant]
  7. SALOSPIR [Concomitant]

REACTIONS (1)
  - HEPATIC NEOPLASM MALIGNANT [None]
